FAERS Safety Report 7378971-3 (Version None)
Quarter: 2011Q1

REPORT INFORMATION
  Report Type: 
  Country: None (occurrence: None)
  Receive Date: 20110328
  Receipt Date: 20110322
  Transmission Date: 20110831
  Serious: Yes (Hospitalization)
  Sender: FDA-Public Use
  Company Number: CHPA2011DE02026

PATIENT
  Sex: Female
  Weight: 84.807 kg

DRUGS (1)
  1. NICOTINELL TTS 30 [Suspect]
     Indication: SMOKING CESSATION THERAPY
     Dosage: 21 MG, ONCE/SINGLE
     Route: 062
     Dates: start: 20110127, end: 20110127

REACTIONS (5)
  - NERVOUSNESS [None]
  - NEUROLOGICAL SYMPTOM [None]
  - ASTHENIA [None]
  - COLD SWEAT [None]
  - DIZZINESS [None]
